FAERS Safety Report 7299624-6 (Version None)
Quarter: 2011Q1

REPORT INFORMATION
  Report Type: 
  Country: None (occurrence: None)
  Receive Date: 20110217
  Receipt Date: 20110208
  Transmission Date: 20110831
  Serious: Yes (Hospitalization, Other)
  Sender: FDA-Public Use
  Company Number: GB-TEVA-266986ISR

PATIENT
  Age: 74 Year
  Sex: Male

DRUGS (1)
  1. CLARITHROMYCIN [Suspect]
     Route: 048
     Dates: start: 20110121, end: 20110125

REACTIONS (1)
  - NODAL ARRHYTHMIA [None]
